FAERS Safety Report 21703325 (Version 1)
Quarter: 2022Q4

REPORT INFORMATION
  Report Type: Spontaneous
  Country: FR (occurrence: FR)
  Receive Date: 20221209
  Receipt Date: 20221209
  Transmission Date: 20230113
  Serious: Yes (Hospitalization)
  Sender: FDA-Public Use
  Company Number: FR-AFSSAPS-MP20223480

PATIENT
  Age: 60 Year
  Sex: Female

DRUGS (1)
  1. BACLOFEN [Suspect]
     Active Substance: BACLOFEN
     Indication: Muscle rigidity
     Dosage: 50 MCG, DAILY
     Route: 029
     Dates: start: 20220214

REACTIONS (2)
  - Vertigo [Unknown]
  - Hypotonia [Recovering/Resolving]

NARRATIVE: CASE EVENT DATE: 20220225
